FAERS Safety Report 9910884 (Version 2)
Quarter: 2014Q1

REPORT INFORMATION
  Report Type: Report from Study
  Country: CA (occurrence: CA)
  Receive Date: 20140219
  Receipt Date: 20140219
  Transmission Date: 20141002
  Serious: Yes (Other)
  Sender: FDA-Public Use
  Company Number: CA-ABBVIE-13P-028-1106373-00

PATIENT
  Sex: Female
  Weight: 49.03 kg

DRUGS (2)
  1. HUMIRA [Suspect]
     Indication: CROHN^S DISEASE
     Route: 058
     Dates: start: 20130416, end: 201305
  2. PREDNISONE [Concomitant]
     Indication: CROHN^S DISEASE
     Route: 048
     Dates: start: 2013

REACTIONS (1)
  - Ileal stenosis [Recovered/Resolved]
